FAERS Safety Report 4810097-2 (Version None)
Quarter: 2005Q4

REPORT INFORMATION
  Report Type: 
  Country: None (occurrence: None)
  Receive Date: 20051024
  Receipt Date: 20051011
  Transmission Date: 20060501
  Serious: Yes (Other)
  Sender: FDA-Public Use
  Company Number: 2005140821

PATIENT
  Age: 75 Year
  Sex: Male

DRUGS (5)
  1. ZYVOX [Suspect]
     Indication: BRONCHOPNEUMONIA
     Dosage: 600 MG
  2. DOXYCYCLINE MONOHYDRATE (DOXYCYCLINE MONOHYDRATE) [Concomitant]
  3. DL-LYSINE ACETYLSALICYLATE (LYSINE0 [Concomitant]
  4. OMEPRAZOLE [Concomitant]
  5. FUROSEMIDE [Concomitant]

REACTIONS (1)
  - PANCREATITIS [None]
